FAERS Safety Report 18562545 (Version 1)
Quarter: 2020Q4

REPORT INFORMATION
  Report Type: Spontaneous
  Country: US (occurrence: US)
  Receive Date: 20201130
  Receipt Date: 20201130
  Transmission Date: 20210114
  Serious: No
  Sender: FDA-Public Use
  Company Number: US-ROCHE-2425250

PATIENT
  Age: 82 Year
  Sex: Male
  Weight: 68.1 kg

DRUGS (1)
  1. LUCENTIS [Suspect]
     Active Substance: RANIBIZUMAB
     Indication: MACULAR DEGENERATION
     Dosage: EVERY 3-4 WEEKS, LEFT EYE
     Route: 065
     Dates: start: 201906

REACTIONS (3)
  - Swelling [Not Recovered/Not Resolved]
  - Paraesthesia [Not Recovered/Not Resolved]
  - Feeling cold [Unknown]

NARRATIVE: CASE EVENT DATE: 201909
